FAERS Safety Report 5868804-6 (Version None)
Quarter: 2008Q3

REPORT INFORMATION
  Report Type: 
  Country: None (occurrence: None)
  Receive Date: 20080902
  Receipt Date: 20080902
  Transmission Date: 20090109
  Serious: Yes (Other)
  Sender: FDA-Public Use
  Company Number: None

PATIENT
  Age: 54 Year
  Sex: Female
  Weight: 65.318 kg

DRUGS (1)
  1. CHANTIX [Suspect]
     Indication: SMOKING CESSATION THERAPY
     Dosage: 1 TWICE A DAY PO, APPROX 6 MONTHS
     Route: 048

REACTIONS (5)
  - ABNORMAL DREAMS [None]
  - NAUSEA [None]
  - TOBACCO USER [None]
  - TREATMENT NONCOMPLIANCE [None]
  - VOMITING [None]
